FAERS Safety Report 9277505 (Version 1)
Quarter: 2013Q2

REPORT INFORMATION
  Report Type: Spontaneous
  Country: US (occurrence: None)
  Receive Date: 20130503
  Receipt Date: 20130503
  Transmission Date: 20140414
  Serious: Yes (Other)
  Sender: FDA-Public Use
  Company Number: None

PATIENT
  Age: 31 Year
  Sex: Female
  Weight: 69.4 kg

DRUGS (1)
  1. CYMBALTA 30 MG LILLY [Suspect]
     Indication: DEPRESSION
     Route: 048
     Dates: start: 20130301, end: 20130425

REACTIONS (2)
  - Pregnancy [None]
  - Abortion spontaneous [None]
